FAERS Safety Report 18905302 (Version 1)
Quarter: 2021Q1

REPORT INFORMATION
  Report Type: Report from Study
  Country: US (occurrence: US)
  Receive Date: 20210217
  Receipt Date: 20210217
  Transmission Date: 20210420
  Serious: Yes (Other)
  Sender: FDA-Public Use
  Company Number: US-JNJFOC-20210115976

PATIENT
  Sex: Male

DRUGS (2)
  1. SELEXIPAG [Suspect]
     Active Substance: SELEXIPAG
     Route: 048
     Dates: start: 20210125
  2. SELEXIPAG [Suspect]
     Active Substance: SELEXIPAG
     Indication: PRODUCT USED FOR UNKNOWN INDICATION
     Route: 048
     Dates: start: 20210104

REACTIONS (3)
  - Oxygen saturation decreased [Recovering/Resolving]
  - Gait disturbance [Recovering/Resolving]
  - Blood pressure decreased [Recovering/Resolving]

NARRATIVE: CASE EVENT DATE: 20210107
